FAERS Safety Report 7724471-8 (Version None)
Quarter: 2011Q3

REPORT INFORMATION
  Report Type: 
  Country: None (occurrence: None)
  Receive Date: 20110901
  Receipt Date: 20110817
  Transmission Date: 20111222
  Serious: Yes (Hospitalization)
  Sender: FDA-Public Use
  Company Number: US-GLAXOSMITHKLINE-A0941375A

PATIENT
  Age: 79 Year
  Sex: Male

DRUGS (2)
  1. VOTRIENT [Suspect]
     Indication: LUNG NEOPLASM MALIGNANT
     Dosage: 3TAB PER DAY
     Route: 048
     Dates: start: 20110725
  2. NO CONCURRENT MEDICATION [Concomitant]

REACTIONS (3)
  - BRONCHITIS [None]
  - HYPERTENSION [None]
  - APHONIA [None]
